FAERS Safety Report 6614944-3 (Version None)
Quarter: 2010Q1

REPORT INFORMATION
  Report Type: 
  Country: None (occurrence: None)
  Receive Date: 20100226
  Receipt Date: 20100218
  Transmission Date: 20100710
  Serious: Yes (Other)
  Sender: FDA-Public Use
  Company Number: 007452

PATIENT
  Sex: Female

DRUGS (1)
  1. KEPPRA [Suspect]
     Dates: start: 20080101

REACTIONS (1)
  - DEAFNESS [None]
